FAERS Safety Report 20900707 (Version 1)
Quarter: 2022Q2

REPORT INFORMATION
  Report Type: Spontaneous
  Country: NL (occurrence: NL)
  Receive Date: 20220601
  Receipt Date: 20220601
  Transmission Date: 20220721
  Serious: Yes (Other)
  Sender: FDA-Public Use
  Company Number: None

PATIENT
  Age: 79 Year
  Sex: Female
  Weight: 80 kg

DRUGS (3)
  1. DEXAMETHASONE [Suspect]
     Active Substance: DEXAMETHASONE
     Indication: Glioblastoma
     Dosage: 4 MILLIGRAM DAILY;  DEXAMETHASON TABLET  4MG / BRAND NAME NOT SPECIFIED, UNIT DOSE : 4 MG, FREQUENCY
     Dates: start: 20220316, end: 20220504
  2. INSULIN NOS [Concomitant]
     Active Substance: INSULIN NOS
     Dosage: INSULIN JUST / BRAND NAME NOT SPECIFIED,THERAPY START DATE AND END DATE : ASKU
  3. CEFTRIAXONE [Concomitant]
     Active Substance: CEFTRIAXONE
     Dosage: 2000 MG (MILLIGRAMS), CEFTRIAXONE INFUSION POWDER 2000MG / BRAND NAME NOT SPECIFIED,THERAPY START DA

REACTIONS (2)
  - Hyperglycaemic hyperosmolar nonketotic syndrome [Not Recovered/Not Resolved]
  - Hyperglycaemia [Not Recovered/Not Resolved]

NARRATIVE: CASE EVENT DATE: 20220501
